FAERS Safety Report 6708677-2 (Version None)
Quarter: 2010Q2

REPORT INFORMATION
  Report Type: 
  Country: None (occurrence: None)
  Receive Date: 20100503
  Receipt Date: 20100421
  Transmission Date: 20101027
  Serious: Yes (Hospitalization, Other)
  Sender: FDA-Public Use
  Company Number: US-AMGEN-US345489

PATIENT
  Sex: Female

DRUGS (13)
  1. NPLATE [Suspect]
     Indication: IDIOPATHIC THROMBOCYTOPENIC PURPURA
     Dates: start: 20090324, end: 20090702
  2. COLACE [Concomitant]
  3. TOPROL-XL [Concomitant]
  4. ZANTAC [Concomitant]
  5. MULTI-VITAMINS [Concomitant]
  6. PREDNISONE [Concomitant]
  7. PROTONIX [Concomitant]
  8. VITAMIN C [Concomitant]
  9. VITAMIN B COMPLEX TAB [Concomitant]
  10. AMBIEN [Concomitant]
  11. XANAX [Concomitant]
  12. PLATELETS [Concomitant]
  13. DANAZOL [Concomitant]

REACTIONS (7)
  - DRUG INEFFECTIVE [None]
  - HEADACHE [None]
  - MOUTH HAEMORRHAGE [None]
  - OROPHARYNGEAL BLISTERING [None]
  - PAROTID GLAND ENLARGEMENT [None]
  - PLEURAL EFFUSION [None]
  - THERAPEUTIC RESPONSE DECREASED [None]
